FAERS Safety Report 4996093-3 (Version None)
Quarter: 2006Q2

REPORT INFORMATION
  Report Type: 
  Country: None (occurrence: None)
  Receive Date: 20060508
  Receipt Date: 20060126
  Transmission Date: 20061013
  Serious: Yes (Hospitalization)
  Sender: FDA-Public Use
  Company Number: US-MERCK-0601USA03610

PATIENT
  Age: 64 Year
  Sex: Male
  Weight: 109 kg

DRUGS (16)
  1. VIOXX [Suspect]
     Indication: ARTHRITIS
     Route: 048
     Dates: start: 20010401, end: 20040101
  2. LISINOPRIL [Concomitant]
     Route: 065
     Dates: start: 19990701, end: 20040601
  3. TOPROL-XL [Concomitant]
     Route: 065
     Dates: start: 19990101, end: 20041101
  4. TERAZOSIN HYDROCHLORIDE [Concomitant]
     Route: 065
     Dates: start: 19981201, end: 20050101
  5. FUROSEMIDE [Concomitant]
     Route: 065
     Dates: start: 19990201, end: 20050201
  6. ASPIRIN [Concomitant]
     Route: 065
     Dates: start: 19960701
  7. ZOCOR [Concomitant]
     Route: 065
     Dates: start: 20010101, end: 20050101
  8. NORVASC [Concomitant]
     Route: 065
  9. PRILOSEC [Concomitant]
     Route: 065
  10. K-DUR 10 [Concomitant]
     Route: 065
  11. QUININE [Concomitant]
     Route: 065
  12. NITRO-DUR [Concomitant]
     Route: 065
  13. IMDUR [Concomitant]
     Route: 065
  14. MINIPRESS [Concomitant]
     Route: 065
  15. COUMADIN [Concomitant]
     Route: 065
  16. VIOXX [Suspect]
     Indication: BACK PAIN
     Route: 048
     Dates: start: 20010401, end: 20040101

REACTIONS (5)
  - ANGINA UNSTABLE [None]
  - CARDIAC FAILURE CONGESTIVE [None]
  - HYPERLIPIDAEMIA [None]
  - MYOCARDIAL INFARCTION [None]
  - SWELLING [None]
